FAERS Safety Report 8334027-4 (Version None)
Quarter: 2012Q2

REPORT INFORMATION
  Report Type: 
  Country: None (occurrence: None)
  Receive Date: 20120503
  Receipt Date: 20120424
  Transmission Date: 20120825
  Serious: Yes (Hospitalization)
  Sender: FDA-Public Use
  Company Number: US-ABBOTT-12P-163-0928921-00

PATIENT
  Sex: Female
  Weight: 88.076 kg

DRUGS (12)
  1. JANUMET [Concomitant]
     Indication: DIABETES MELLITUS
  2. TRAZODONE HCL [Concomitant]
     Indication: INSOMNIA
  3. LEVOTHYROXINE SODIUM [Concomitant]
     Indication: HYPOTHYROIDISM
  4. ASPIRIN [Concomitant]
     Indication: PRODUCT USED FOR UNKNOWN INDICATION
  5. HUMIRA [Suspect]
     Indication: RHEUMATOID ARTHRITIS
     Dates: end: 20120301
  6. PANTOPRAZOLE [Concomitant]
     Indication: PRODUCT USED FOR UNKNOWN INDICATION
  7. HUMIRA [Suspect]
     Indication: RHEUMATOID ARTHRITIS
  8. AMLODIPINE [Concomitant]
     Indication: HYPERTENSION
  9. NEXIUM [Concomitant]
     Indication: GASTROOESOPHAGEAL REFLUX DISEASE
  10. GABAPENTIN [Concomitant]
     Indication: DIABETES MELLITUS
  11. SIMVASTATIN [Concomitant]
     Indication: BLOOD CHOLESTEROL INCREASED
  12. LISINOPRIL [Concomitant]
     Indication: HYPERTENSION

REACTIONS (7)
  - ROAD TRAFFIC ACCIDENT [None]
  - MOBILITY DECREASED [None]
  - SPINAL COLUMN INJURY [None]
  - GAIT DISTURBANCE [None]
  - PAIN [None]
  - PAIN IN EXTREMITY [None]
  - PAPULE [None]
